FAERS Safety Report 8878094 (Version 1)
Quarter: 2012Q4

REPORT INFORMATION
  Report Type: Spontaneous
  Country: CN (occurrence: None)
  Receive Date: 20121026
  Receipt Date: 20121026
  Transmission Date: 20130627
  Serious: Yes (Other)
  Sender: FDA-Public Use
  Company Number: 2012P1061131

PATIENT
  Age: 32 Year
  Sex: Female

DRUGS (1)
  1. CEFAZOLIN [Suspect]

REACTIONS (1)
  - Toxic epidermal necrolysis [None]
